FAERS Safety Report 6046441-0 (Version None)
Quarter: 2009Q1

REPORT INFORMATION
  Report Type: 
  Country: None (occurrence: None)
  Receive Date: 20090121
  Receipt Date: 20090121
  Transmission Date: 20090719
  Serious: Yes (Life-Threatening)
  Sender: FDA-Public Use
  Company Number: None

PATIENT
  Age: 59 Year
  Sex: Female
  Weight: 54.4316 kg

DRUGS (1)
  1. ENBREL [Suspect]
     Indication: RHEUMATOID ARTHRITIS
     Dosage: 50 MG ONCE A WEEK ID WEEKS ID
     Route: 023
     Dates: start: 20071221, end: 20080111

REACTIONS (2)
  - LIVER FUNCTION TEST ABNORMAL [None]
  - THROMBOSIS [None]
